FAERS Safety Report 19889430 (Version 1)
Quarter: 2021Q3

REPORT INFORMATION
  Report Type: Spontaneous
  Country: US (occurrence: US)
  Receive Date: 20210928
  Receipt Date: 20210928
  Transmission Date: 20211014
  Serious: Yes (Other)
  Sender: FDA-Public Use
  Company Number: None

PATIENT
  Age: 86 Year
  Sex: Female
  Weight: 61.65 kg

DRUGS (9)
  1. DICYCLOMINE 20 MG [Concomitant]
  2. REGEN?COV [Suspect]
     Active Substance: CASIRIVIMAB\IMDEVIMAB
     Indication: COVID-19
     Dosage: ?          OTHER FREQUENCY:ONCE;?
     Route: 042
     Dates: start: 20210924, end: 20210924
  3. VITAMIN D3 1,000 UNITS [Concomitant]
  4. CLOPIDOGREL [Concomitant]
     Active Substance: CLOPIDOGREL BISULFATE
  5. CETIRIZINE [Concomitant]
     Active Substance: CETIRIZINE HYDROCHLORIDE
  6. LOPERAMIDE  1 MG/ML [Concomitant]
  7. EVOLOCUMAB 140 MG/ML [Concomitant]
  8. TEMAZEPAM 15 MG [Concomitant]
  9. CYANOCOBALAMIN INJ 1,000 MCG [Concomitant]

REACTIONS (3)
  - Pruritus [None]
  - Infusion related reaction [None]
  - Throat irritation [None]

NARRATIVE: CASE EVENT DATE: 20210924
